FAERS Safety Report 4976978-4 (Version None)
Quarter: 2006Q2

REPORT INFORMATION
  Report Type: 
  Country: None (occurrence: None)
  Receive Date: 20060412
  Receipt Date: 20060404
  Transmission Date: 20061013
  Serious: No
  Sender: FDA-Public Use
  Company Number: USA-2006-0023948

PATIENT
  Age: 50 Year
  Sex: Female

DRUGS (1)
  1. OXYCONTIN [Suspect]
     Indication: SPINAL CORD INJURY
     Dosage: 20 MG, TID, ORAL : 40 MG TID, ORAL : 80 MG TID, ORAL
     Route: 048
     Dates: start: 20020101

REACTIONS (6)
  - ABDOMINAL NEOPLASM [None]
  - ABDOMINAL PAIN LOWER [None]
  - FATIGUE [None]
  - INADEQUATE ANALGESIA [None]
  - PAIN [None]
  - SOMNOLENCE [None]
